FAERS Safety Report 5119051-7 (Version None)
Quarter: 2006Q3

REPORT INFORMATION
  Report Type: 
  Country: None (occurrence: None)
  Receive Date: 20060927
  Receipt Date: 20060912
  Transmission Date: 20061208
  Serious: Yes (Hospitalization)
  Sender: FDA-Public Use
  Company Number: 2006PV021175

PATIENT
  Age: 48 Year
  Sex: Female

DRUGS (16)
  1. SYMLIN [Suspect]
     Indication: DIABETES MELLITUS NON-INSULIN-DEPENDENT
     Dosage: 120 MCG; TID; SC;  60 MCG; BID; SC
     Route: 058
     Dates: start: 20060517, end: 20060501
  2. SYMLIN [Suspect]
     Indication: DIABETES MELLITUS NON-INSULIN-DEPENDENT
     Dosage: 120 MCG; TID; SC;  60 MCG; BID; SC
     Route: 058
     Dates: start: 20060501
  3. OXYCONTIN [Suspect]
  4. LISINOPRIL [Suspect]
  5. HUMALOG [Concomitant]
  6. LANTUS [Concomitant]
  7. FOLIC ACID [Concomitant]
  8. METHOTREXATE [Concomitant]
  9. PLAQUENIL [Concomitant]
  10. LIPITOR [Concomitant]
  11. SYNTHROID [Concomitant]
  12. MOBIC [Concomitant]
  13. WELLBUTRIN [Concomitant]
  14. MORPHINE [Concomitant]
  15. DARVOCET [Concomitant]
  16. NEXIUM [Concomitant]

REACTIONS (9)
  - ANAEMIA [None]
  - CONDITION AGGRAVATED [None]
  - DIZZINESS [None]
  - FALL [None]
  - HYPOTENSION [None]
  - RENAL FAILURE [None]
  - ROAD TRAFFIC ACCIDENT [None]
  - THERAPY NON-RESPONDER [None]
  - WEIGHT DECREASED [None]
